FAERS Safety Report 12701742 (Version 1)
Quarter: 2016Q3

REPORT INFORMATION
  Report Type: Spontaneous
  Country: US (occurrence: US)
  Receive Date: 20160831
  Receipt Date: 20160831
  Transmission Date: 20161109
  Serious: No
  Sender: FDA-Public Use
  Company Number: US-JAZZ-2016-US-007395

PATIENT
  Age: 17 Year
  Sex: Female

DRUGS (4)
  1. XYREM [Suspect]
     Active Substance: SODIUM OXYBATE
     Indication: CATAPLEXY
     Dosage: 3 G, BID
     Route: 048
     Dates: start: 201604
  2. FERROUS SULFATE. [Concomitant]
     Active Substance: FERROUS SULFATE
  3. PROVENTIL [Concomitant]
     Active Substance: ALBUTEROL
  4. XYREM [Suspect]
     Active Substance: SODIUM OXYBATE
     Indication: NARCOLEPSY
     Dosage: 2.25 G, BID
     Route: 048
     Dates: start: 201603, end: 201604

REACTIONS (6)
  - Abnormal behaviour [Unknown]
  - Dizziness [Unknown]
  - Unevaluable event [Unknown]
  - Feeling abnormal [Unknown]
  - Thirst [Unknown]
  - Wrong technique in product usage process [Unknown]

NARRATIVE: CASE EVENT DATE: 20160417
